FAERS Safety Report 7262532-0 (Version None)
Quarter: 2011Q1

REPORT INFORMATION
  Report Type: 
  Country: None (occurrence: None)
  Receive Date: 20110130
  Receipt Date: 20101216
  Transmission Date: 20110831
  Serious: Yes (Other)
  Sender: FDA-Public Use
  Company Number: US-ABBOTT-10P-163-0690722-00

PATIENT
  Sex: Female
  Weight: 62.652 kg

DRUGS (6)
  1. HUMIRA [Suspect]
     Indication: CROHN'S DISEASE
     Route: 058
     Dates: start: 20091001
  2. PENTASA [Concomitant]
     Indication: CROHN'S DISEASE
     Route: 048
  3. PROTONIX [Concomitant]
     Indication: PROPHYLAXIS
  4. CIPRO [Concomitant]
     Indication: PROPHYLAXIS
     Route: 048
  5. ENTOCORT EC [Concomitant]
     Indication: CROHN'S DISEASE
     Route: 048
  6. PROTONIX [Concomitant]
     Indication: DYSPEPSIA

REACTIONS (5)
  - ABDOMINAL PAIN [None]
  - DIARRHOEA [None]
  - DEHYDRATION [None]
  - SYNCOPE [None]
  - NAUSEA [None]
